FAERS Safety Report 6913706-7 (Version None)
Quarter: 2010Q3

REPORT INFORMATION
  Report Type: 
  Country: None (occurrence: None)
  Receive Date: 20100809
  Receipt Date: 20080623
  Transmission Date: 20110219
  Serious: No
  Sender: FDA-Public Use
  Company Number: US-PFIZER INC-2008036506

PATIENT
  Sex: Female
  Weight: 61.23 kg

DRUGS (4)
  1. ATORVASTATIN [Suspect]
     Indication: BLOOD CHOLESTEROL INCREASED
     Route: 048
     Dates: start: 20070412, end: 20070419
  2. HUMIRA [Concomitant]
     Indication: RHEUMATOID ARTHRITIS
     Route: 058
     Dates: start: 20060801
  3. DYAZIDE [Concomitant]
     Indication: HYPERTENSION
     Dosage: 75/50MG
     Route: 048
  4. RAMIPRIL [Concomitant]
     Indication: HYPERTENSION
     Dosage: 2.5 MG (2.5 MG, 1 IN 1 D)
     Route: 048
     Dates: start: 20070412

REACTIONS (2)
  - ARTHRALGIA [None]
  - MYALGIA [None]
